FAERS Safety Report 8980270 (Version 3)
Quarter: 2013Q1

REPORT INFORMATION
  Report Type: Spontaneous
  Country: ZA (occurrence: ZA)
  Receive Date: 20121221
  Receipt Date: 20130308
  Transmission Date: 20140127
  Serious: No
  Sender: FDA-Public Use
  Company Number: ZA-ABBOTT-12P-143-1021708-00

PATIENT
  Sex: Male
  Weight: 69 kg

DRUGS (6)
  1. RITONAVIR [Suspect]
     Indication: PRODUCT USED FOR UNKNOWN INDICATION
     Route: 048
     Dates: start: 20121015
  2. ETREVIRINE [Concomitant]
     Indication: PRODUCT USED FOR UNKNOWN INDICATION
  3. EFAVIRENZ/SUSTIVA/STOCRM/EFV [Concomitant]
     Indication: PRODUCT USED FOR UNKNOWN INDICATION
     Route: 048
     Dates: start: 20111003, end: 20121015
  4. TYRICTEN [Concomitant]
     Indication: PRODUCT USED FOR UNKNOWN INDICATION
     Route: 048
     Dates: start: 20111001
  5. ATAZANAVIR/REYATAZ/ATV [Concomitant]
     Indication: PRODUCT USED FOR UNKNOWN INDICATION
     Route: 048
     Dates: start: 20121015
  6. PURBAC DS [Concomitant]
     Indication: PNEUMONIA
     Route: 048

REACTIONS (1)
  - Dermatitis [Unknown]
